FAERS Safety Report 8492607-X (Version None)
Quarter: 2012Q2

REPORT INFORMATION
  Report Type: 
  Country: None (occurrence: None)
  Receive Date: 20120629
  Receipt Date: 20120629
  Transmission Date: 20120825
  Serious: Yes (Other)
  Sender: FDA-Public Use
  Company Number: None

PATIENT
  Age: 51 Year
  Sex: Female
  Weight: 49 kg

DRUGS (2)
  1. AVEENO SKIN RELIEF MOISTURE REPAIR CREAM [Suspect]
     Indication: PRURITUS
     Dosage: FINGERTIP,1OR2TIMES, TOPICAL
     Route: 061
     Dates: start: 20120611
  2. SYNTHROID [Concomitant]

REACTIONS (2)
  - OFF LABEL USE [None]
  - TINNITUS [None]
